FAERS Safety Report 24699742 (Version 1)
Quarter: 2024Q4

REPORT INFORMATION
  Report Type: Spontaneous
  Country: FR (occurrence: FR)
  Receive Date: 20241205
  Receipt Date: 20241205
  Transmission Date: 20250115
  Serious: Yes (Hospitalization)
  Sender: Haleon PLC
  Company Number: None

PATIENT
  Age: 33 Year
  Sex: Male

DRUGS (4)
  1. IBUPROFEN [Suspect]
     Active Substance: IBUPROFEN
     Indication: Intentional overdose
     Dosage: TIME INTERVAL: 1 TOTAL: 12 CP X 400 MG
     Route: 048
     Dates: start: 20240929, end: 20240929
  2. NICARDIPINE HYDROCHLORIDE [Suspect]
     Active Substance: NICARDIPINE HYDROCHLORIDE
     Indication: Intentional overdose
     Dosage: TIME INTERVAL: 1 TOTAL
     Route: 048
     Dates: start: 20240929, end: 20240929
  3. IRBESARTAN [Suspect]
     Active Substance: IRBESARTAN
     Indication: Intentional overdose
     Dosage: TIME INTERVAL: 1 TOTAL: 10 CP X 75 MG
     Route: 048
     Dates: start: 20240929, end: 20240929
  4. SILDENAFIL [Suspect]
     Active Substance: SILDENAFIL
     Indication: Intentional overdose
     Dosage: TIME INTERVAL: 1 TOTAL: 5 CP X 50 MG
     Route: 048
     Dates: start: 20240929, end: 20240929

REACTIONS (2)
  - Poisoning deliberate [Recovered/Resolved]
  - Hypotension [Recovered/Resolved]

NARRATIVE: CASE EVENT DATE: 20240929
